FAERS Safety Report 5753855-2 (Version None)
Quarter: 2008Q2

REPORT INFORMATION
  Report Type: 
  Country: None (occurrence: None)
  Receive Date: 20080530
  Receipt Date: 20080519
  Transmission Date: 20081010
  Serious: Yes (Hospitalization)
  Sender: FDA-Public Use
  Company Number: BR-ROCHE-565823

PATIENT
  Age: 60 Year
  Sex: Male

DRUGS (10)
  1. BONIVA [Suspect]
     Indication: DRUG USE FOR UNKNOWN INDICATION
     Route: 065
  2. WELLBUTRIN [Concomitant]
     Dates: start: 20080101
  3. NEXIUM [Concomitant]
  4. CRESTOR [Concomitant]
     Dosage: DRUG NAME: CRESTOR 10
  5. DICETEL [Concomitant]
  6. XENICAL [Concomitant]
  7. ALPRAZ [Concomitant]
  8. ZOMIG [Concomitant]
  9. DIPIRONE [Concomitant]
     Dosage: TAKEN SOMETIMES
  10. ERGOTAMINE [Concomitant]
     Dosage: TAKEN SOMETIMES

REACTIONS (1)
  - HEPATOTOXICITY [None]
